FAERS Safety Report 14154875 (Version 1)
Quarter: 2017Q4

REPORT INFORMATION
  Report Type: Spontaneous
  Country: US (occurrence: US)
  Receive Date: 20171103
  Receipt Date: 20171103
  Transmission Date: 20180321
  Serious: Yes (Disabling)
  Sender: FDA-Public Use
  Company Number: None

PATIENT
  Age: 33 Year
  Sex: Female
  Weight: 141.75 kg

DRUGS (5)
  1. LIALDA [Concomitant]
     Active Substance: MESALAMINE
  2. VITAMIN D [Concomitant]
     Active Substance: CHOLECALCIFEROL
  3. MESALAMINE DELAYED-RELEASE TABLETS [Suspect]
     Active Substance: MESALAMINE
     Indication: COLITIS ULCERATIVE
     Dosage: ?          QUANTITY:4 CAPSULE(S);?
     Route: 048
     Dates: start: 20170901, end: 20170930
  4. IRON [Concomitant]
     Active Substance: IRON
  5. PREDNISONE. [Concomitant]
     Active Substance: PREDNISONE

REACTIONS (1)
  - Condition aggravated [None]

NARRATIVE: CASE EVENT DATE: 20170901
